FAERS Safety Report 19847793 (Version 4)
Quarter: 2022Q2

REPORT INFORMATION
  Report Type: Spontaneous
  Country: US (occurrence: US)
  Receive Date: 20210917
  Receipt Date: 20220511
  Transmission Date: 20220721
  Serious: Yes (Hospitalization)
  Sender: FDA-Public Use
  Company Number: US-PFIZER INC-202101091122

PATIENT
  Age: 74 Year
  Sex: Female
  Weight: 66.213 kg

DRUGS (1)
  1. CHANTIX [Suspect]
     Active Substance: VARENICLINE TARTRATE
     Indication: Smoking cessation therapy
     Dosage: 2X/DAY (10 2X DAY)
     Dates: start: 202104

REACTIONS (9)
  - Malaise [Recovered/Resolved]
  - Abdominal discomfort [Recovered/Resolved]
  - Dizziness [Recovered/Resolved]
  - Thinking abnormal [Unknown]
  - Loss of personal independence in daily activities [Unknown]
  - Vomiting [Unknown]
  - Headache [Recovered/Resolved]
  - Nausea [Recovered/Resolved]
  - Recalled product administered [Unknown]

NARRATIVE: CASE EVENT DATE: 20210429
